FAERS Safety Report 8798779 (Version 1)
Quarter: 2012Q4

REPORT INFORMATION
  Report Type: Spontaneous
  Country: US (occurrence: None)
  Receive Date: 20120917
  Receipt Date: 20120917
  Transmission Date: 20130627
  Serious: Yes (Hospitalization)
  Sender: FDA-Public Use
  Company Number: None

PATIENT
  Age: 15 Year
  Sex: Male
  Weight: 95.26 kg

DRUGS (1)
  1. ACCUTANE [Suspect]

REACTIONS (6)
  - Convulsion [None]
  - Loss of consciousness [None]
  - Dizziness [None]
  - Headache [None]
  - Nausea [None]
  - Headache [None]
